FAERS Safety Report 12890589 (Version 3)
Quarter: 2018Q4

REPORT INFORMATION
  Report Type: Spontaneous
  Country: US (occurrence: US)
  Receive Date: 20161027
  Receipt Date: 20181105
  Transmission Date: 20190204
  Serious: No
  Sender: FDA-Public Use
  Company Number: US-JAZZ-2016-US-015712

PATIENT
  Sex: Male

DRUGS (31)
  1. NAPROXEN. [Concomitant]
     Active Substance: NAPROXEN
  2. HYDROCODONE BITARTRATE AND ACETAMINOPHEN [Concomitant]
     Active Substance: ACETAMINOPHEN\HYDROCODONE BITARTRATE
  3. TESTOSTERONE CYPIONATE. [Concomitant]
     Active Substance: TESTOSTERONE CYPIONATE
  4. ONGLYZA [Concomitant]
     Active Substance: SAXAGLIPTIN HYDROCHLORIDE
  5. IBUPROFEN. [Concomitant]
     Active Substance: IBUPROFEN
  6. PRAVASTATIN. [Concomitant]
     Active Substance: PRAVASTATIN
  7. FOLIC ACID. [Concomitant]
     Active Substance: FOLIC ACID
  8. ASPIRIN. [Concomitant]
     Active Substance: ASPIRIN
  9. XYREM [Suspect]
     Active Substance: SODIUM OXYBATE
     Indication: NARCOLEPSY
     Dosage: 2.25 G, BID
     Route: 048
     Dates: start: 201212, end: 201212
  10. XYREM [Suspect]
     Active Substance: SODIUM OXYBATE
     Dosage: 4.5 G, BID
     Route: 048
     Dates: start: 201603
  11. VIIBRYD [Concomitant]
     Active Substance: VILAZODONE HYDROCHLORIDE
  12. TOPIRAMATE. [Concomitant]
     Active Substance: TOPIRAMATE
  13. PENTAZOCINE AND NALOXONE [Concomitant]
     Active Substance: NALOXONE HYDROCHLORIDE\PENTAZOCINE HYDROCHLORIDE
  14. SULFASALAZINE. [Concomitant]
     Active Substance: SULFASALAZINE
  15. DHEA [Concomitant]
     Active Substance: PRASTERONE
  16. XANAX [Concomitant]
     Active Substance: ALPRAZOLAM
  17. VITAMIN B12 [Concomitant]
     Active Substance: CYANOCOBALAMIN
  18. LASIX [Concomitant]
     Active Substance: FUROSEMIDE
  19. MORPHINE SULF [Concomitant]
     Active Substance: MORPHINE SULFATE
  20. VITAMIN D [Concomitant]
     Active Substance: CHOLECALCIFEROL
  21. POTASSIUM [Concomitant]
     Active Substance: POTASSIUM
  22. ALENDRONATE SODIUM. [Concomitant]
     Active Substance: ALENDRONATE SODIUM
  23. AMITRIPTYLINE HCL [Concomitant]
     Active Substance: AMITRIPTYLINE
  24. XYREM [Suspect]
     Active Substance: SODIUM OXYBATE
     Dosage: DOSE ADJUSTMENTS
     Route: 048
     Dates: start: 201212, end: 201603
  25. CALTRATE [Concomitant]
     Active Substance: CALCIUM CARBONATE
  26. MECLIZINE [Concomitant]
     Active Substance: MECLIZINE HYDROCHLORIDE
  27. RITALIN [Concomitant]
     Active Substance: METHYLPHENIDATE HYDROCHLORIDE
  28. BACLOFEN. [Concomitant]
     Active Substance: BACLOFEN
  29. LYRICA [Concomitant]
     Active Substance: PREGABALIN
  30. SODIUM SULFACETAMIDE [Concomitant]
     Active Substance: SULFACETAMIDE SODIUM
  31. CELEXA [Concomitant]
     Active Substance: CITALOPRAM HYDROBROMIDE

REACTIONS (1)
  - Bone disorder [Recovering/Resolving]
